FAERS Safety Report 6455241-9 (Version None)
Quarter: 2009Q4

REPORT INFORMATION
  Report Type: 
  Country: None (occurrence: None)
  Receive Date: 20091119
  Receipt Date: 20091117
  Transmission Date: 20100525
  Serious: Yes (Death, Hospitalization)
  Sender: FDA-Public Use
  Company Number: SP01758

PATIENT
  Age: 77 Year
  Sex: Female
  Weight: 50.8029 kg

DRUGS (10)
  1. OSMOPREP [Suspect]
     Indication: COLONOSCOPY
     Dosage: 32 TABLETS, ORAL
     Route: 048
     Dates: start: 20061112, end: 20061113
  2. LISINOPRIL [Concomitant]
  3. DIOVAN HCT [Concomitant]
  4. NORVASC [Concomitant]
  5. DIPYRIDAMOLE [Concomitant]
  6. SYNTHROID [Concomitant]
  7. XALATAN [Concomitant]
  8. TIMOPTIC [Concomitant]
  9. TYLENOL (CAPLET) [Concomitant]
  10. NEXIUM [Concomitant]

REACTIONS (18)
  - BLOOD CALCIUM DECREASED [None]
  - BLOOD POTASSIUM DECREASED [None]
  - DIALYSIS [None]
  - DIVERTICULITIS [None]
  - DRY SKIN [None]
  - GALLBLADDER DISORDER [None]
  - HAEMODIALYSIS [None]
  - HYPERTENSION [None]
  - HYPOAESTHESIA [None]
  - LETHARGY [None]
  - NEPHROCALCINOSIS [None]
  - PARAESTHESIA [None]
  - PNEUMONIA [None]
  - PULMONARY MASS [None]
  - RENAL TUBULAR DISORDER [None]
  - SEPSIS [None]
  - TREMOR [None]
  - TUBULOINTERSTITIAL NEPHRITIS [None]
